FAERS Safety Report 10090688 (Version 1)
Quarter: 2014Q2

REPORT INFORMATION
  Report Type: Spontaneous
  Country: US (occurrence: US)
  Receive Date: 20140421
  Receipt Date: 20140421
  Transmission Date: 20141212
  Serious: No
  Sender: FDA-Public Use
  Company Number: US-GILEAD-2014-0100278

PATIENT
  Sex: Male

DRUGS (2)
  1. LETAIRIS [Suspect]
     Indication: PRODUCT USED FOR UNKNOWN INDICATION
     Route: 065
  2. REVATIO [Concomitant]

REACTIONS (5)
  - Pain in extremity [Unknown]
  - Oedema peripheral [Unknown]
  - Dyspnoea [Unknown]
  - Sinusitis [Unknown]
  - Headache [Unknown]
